FAERS Safety Report 9974478 (Version 1)
Quarter: 2014Q1

REPORT INFORMATION
  Report Type: Report from Study
  Country: US (occurrence: US)
  Receive Date: 20140306
  Receipt Date: 20140306
  Transmission Date: 20141002
  Serious: No
  Sender: FDA-Public Use
  Company Number: US-ABBVIE-13P-163-1156488-00

PATIENT
  Age: 70 Year
  Sex: Female

DRUGS (10)
  1. HUMIRA [Suspect]
     Indication: CROHN^S DISEASE
     Dates: start: 20130910
  2. HUMIRA [Suspect]
     Dates: start: 20130924
  3. HUMIRA [Suspect]
     Dates: start: 20131008
  4. BUDESONIDE [Concomitant]
     Indication: CROHN^S DISEASE
  5. PENTASA [Concomitant]
     Indication: CROHN^S DISEASE
  6. LOVAZA [Concomitant]
     Indication: BLOOD TRIGLYCERIDES
  7. ATORVASTATIN [Concomitant]
     Indication: BLOOD CHOLESTEROL
     Dosage: 40 MG DAILY
  8. SERTRALINE [Concomitant]
     Indication: DEPRESSION
     Dosage: 50 MG DAILY
  9. SERTRALINE [Concomitant]
     Indication: ANXIETY
  10. OMEPRAZOLE [Concomitant]
     Indication: GASTROOESOPHAGEAL REFLUX DISEASE

REACTIONS (1)
  - Solar lentigo [Not Recovered/Not Resolved]
